FAERS Safety Report 4497308-0 (Version None)
Quarter: 2004Q4

REPORT INFORMATION
  Report Type: 
  Country: None (occurrence: None)
  Receive Date: 20041104
  Receipt Date: 20041019
  Transmission Date: 20050328
  Serious: Yes (Other)
  Sender: FDA-Public Use
  Company Number: 239932

PATIENT
  Sex: Female

DRUGS (2)
  1. ACTIVELLE (ESTRADIOL HEMIHYDRATE, NORETHISTERONE ACETATE) [Suspect]
     Indication: ILL-DEFINED DISORDER
     Dates: start: 20040101
  2. CLIMENE (CYPROTERONE ACETATE) [Concomitant]

REACTIONS (1)
  - PULMONARY EMBOLISM [None]
